FAERS Safety Report 10072454 (Version 1)
Quarter: 2014Q2

REPORT INFORMATION
  Report Type: Spontaneous
  Country: US (occurrence: None)
  Receive Date: 20140409
  Receipt Date: 20140409
  Transmission Date: 20141212
  Serious: Yes (Other)
  Sender: FDA-Public Use
  Company Number: ADR-2013-02028

PATIENT
  Sex: Female

DRUGS (3)
  1. LIORESAL INTRATHECAL (BACLOFEN INJECTION) 2000 MCG/ML [Suspect]
     Indication: MUSCLE SPASTICITY
  2. TIZANIDINE [Suspect]
  3. TRAMADOL [Suspect]

REACTIONS (7)
  - No therapeutic response [None]
  - Movement disorder [None]
  - Limb discomfort [None]
  - Hypotonia [None]
  - Thermal burn [None]
  - Device malfunction [None]
  - Withdrawal syndrome [None]
